FAERS Safety Report 5480882-5 (Version None)
Quarter: 2007Q4

REPORT INFORMATION
  Report Type: 
  Country: None (occurrence: None)
  Receive Date: 20071004
  Receipt Date: 20070927
  Transmission Date: 20080405
  Serious: Yes (Hospitalization, Other)
  Sender: FDA-Public Use
  Company Number: 128-20785-07091479

PATIENT
  Sex: Male

DRUGS (1)
  1. THALIDOMIDE [Suspect]
     Indication: MULTIPLE MYELOMA
     Dosage: 400 MG, 8 IN 1 D, ORAL
     Route: 048
     Dates: start: 20070829, end: 20070901

REACTIONS (9)
  - ANOREXIA [None]
  - BACK PAIN [None]
  - BLOOD POTASSIUM DECREASED [None]
  - BLOOD SODIUM DECREASED [None]
  - HAEMOGLOBIN DECREASED [None]
  - LUNG INFILTRATION [None]
  - PALLOR [None]
  - PNEUMONITIS [None]
  - SKIN TURGOR DECREASED [None]
